FAERS Safety Report 24731839 (Version 1)
Quarter: 2024Q4

REPORT INFORMATION
  Report Type: Other
  Country: SA (occurrence: SA)
  Receive Date: 20241213
  Receipt Date: 20241213
  Transmission Date: 20250115
  Serious: Yes (Hospitalization, Other)
  Sender: EMD SERONO INC
  Company Number: SA-Merck Healthcare KGaA-2024064511

PATIENT
  Age: 56 Year
  Sex: Male

DRUGS (1)
  1. METFORMIN [Suspect]
     Active Substance: METFORMIN HYDROCHLORIDE
     Indication: Type 2 diabetes mellitus

REACTIONS (4)
  - Uraemic encephalopathy [Recovering/Resolving]
  - Metabolic acidosis [Recovering/Resolving]
  - Azotaemia [Unknown]
  - Contraindicated product administered [Unknown]
